FAERS Safety Report 7130390-0 (Version None)
Quarter: 2010Q4

REPORT INFORMATION
  Report Type: 
  Country: None (occurrence: None)
  Receive Date: 20101201
  Receipt Date: 20101115
  Transmission Date: 20110411
  Serious: Yes (Hospitalization, Other)
  Sender: FDA-Public Use
  Company Number: PHHY2010US78219

PATIENT

DRUGS (12)
  1. RECLAST [Suspect]
     Dosage: UNK
  2. DIOVAN [Suspect]
     Dosage: 160 MG
  3. JANUMET [Concomitant]
  4. GLIMEPIRIDE [Concomitant]
  5. NEXIUM [Concomitant]
  6. FUROSIDE [Concomitant]
  7. CALCIUM [Concomitant]
  8. VITAMIN D [Concomitant]
  9. CELEBREX [Concomitant]
  10. SKELAXIN [Concomitant]
  11. ASPIRIN [Concomitant]
  12. TYLENOL [Concomitant]

REACTIONS (5)
  - ARTHROPATHY [None]
  - BACK DISORDER [None]
  - BLOOD GLUCOSE INCREASED [None]
  - BLOOD PRESSURE INADEQUATELY CONTROLLED [None]
  - GASTROOESOPHAGEAL REFLUX DISEASE [None]
